FAERS Safety Report 16007971 (Version 2)
Quarter: 2019Q2

REPORT INFORMATION
  Report Type: Spontaneous
  Country: FR (occurrence: FR)
  Receive Date: 20190226
  Receipt Date: 20190403
  Transmission Date: 20190711
  Serious: Yes (Other)
  Sender: FDA-Public Use
  Company Number: FR-TAKEDA-2019TUS009139

PATIENT
  Sex: Female

DRUGS (1)
  1. ICLUSIG [Suspect]
     Active Substance: PONATINIB
     Indication: CHRONIC MYELOID LEUKAEMIA
     Dosage: 45 MG, UNK
     Route: 048
     Dates: start: 2017

REACTIONS (5)
  - Chronic myeloid leukaemia [Unknown]
  - Gene mutation [Unknown]
  - Therapy non-responder [Unknown]
  - Tumour marker increased [Unknown]
  - Therapy partial responder [Unknown]
